FAERS Safety Report 23704342 (Version 1)
Quarter: 2024Q2

REPORT INFORMATION
  Report Type: Spontaneous
  Country: FR (occurrence: FR)
  Receive Date: 20240404
  Receipt Date: 20240404
  Transmission Date: 20240716
  Serious: Yes (Other)
  Sender: FDA-Public Use
  Company Number: FR-CELLTRION INC.-2024FR007670

PATIENT

DRUGS (7)
  1. TRUXIMA [Suspect]
     Active Substance: RITUXIMAB-ABBS
     Indication: Non-Hodgkin^s lymphoma
     Dosage: 274 MG, 1 CYCLE (DOSAGE TEXT: 274 MG)
     Route: 042
     Dates: start: 20201214, end: 20201214
  2. CYCLOPHOSPHAMIDE [Concomitant]
     Active Substance: CYCLOPHOSPHAMIDE
     Indication: Non-Hodgkin^s lymphoma
     Dosage: 1300 MG, 1 CYCLE (DOSAGE TEXT: 1300 MG)
     Route: 042
     Dates: start: 20201102, end: 20210215
  3. PREDNISOLONE SODIUM METAZOATE [Concomitant]
     Active Substance: PREDNISOLONE SODIUM METAZOATE
     Indication: Prophylaxis of nausea and vomiting
     Dosage: 70 MG, 1 CYCLE
     Route: 042
     Dates: start: 20201102, end: 20210205
  4. EMEND [Concomitant]
     Active Substance: APREPITANT
     Indication: Prophylaxis of nausea and vomiting
     Dosage: 375 MG, 1 CYCLE
     Route: 048
     Dates: start: 20201102, end: 20210215
  5. FASTURTEC [Concomitant]
     Active Substance: RASBURICASE
     Indication: Tumour lysis syndrome
     Dosage: 4.5 MG, 1 CYCLE
     Route: 042
     Dates: start: 20201102, end: 20210515
  6. ONDANSETRON [Concomitant]
     Active Substance: ONDANSETRON
     Indication: Prophylaxis of nausea and vomiting
     Dosage: 8 MG, 1 CYCLE
     Route: 042
     Dates: start: 20201102, end: 20210215
  7. VINCRISTINE [Concomitant]
     Active Substance: VINCRISTINE
     Indication: Non-Hodgkin^s lymphoma
     Dosage: 1.7 MG, 1 CYCLE (DOSAGE TEXT: 1.7 MG)
     Route: 042
     Dates: start: 20201102, end: 20210215

REACTIONS (2)
  - Disseminated intravascular coagulation [Recovered/Resolved]
  - Infusion related reaction [Recovered/Resolved]

NARRATIVE: CASE EVENT DATE: 20201214
